FAERS Safety Report 19490339 (Version 1)
Quarter: 2021Q3

REPORT INFORMATION
  Report Type: Spontaneous
  Country: TR (occurrence: TR)
  Receive Date: 20210705
  Receipt Date: 20210705
  Transmission Date: 20211014
  Serious: Yes (Other)
  Sender: FDA-Public Use
  Company Number: TR-ROCHE-2852685

PATIENT
  Age: 62 Year

DRUGS (2)
  1. LUCENTIS [Suspect]
     Active Substance: RANIBIZUMAB
     Dosage: 0.5MG/0.05 ML (MONTHLY)
     Route: 031
     Dates: start: 20210602
  2. LUCENTIS [Suspect]
     Active Substance: RANIBIZUMAB
     Indication: DIABETIC RETINAL OEDEMA
     Dosage: UNK
     Route: 050

REACTIONS (3)
  - Bacterial endophthalmitis [Recovering/Resolving]
  - Pneumonia streptococcal [Unknown]
  - Visual impairment [Unknown]

NARRATIVE: CASE EVENT DATE: 20210603
